FAERS Safety Report 6992151-2 (Version None)
Quarter: 2010Q3

REPORT INFORMATION
  Report Type: 
  Country: None (occurrence: None)
  Receive Date: 20100917
  Receipt Date: 20100907
  Transmission Date: 20110219
  Serious: Yes (Hospitalization)
  Sender: FDA-Public Use
  Company Number: JP-NOVOPROD-313810

PATIENT
  Age: 77 Year
  Sex: Male
  Weight: 56 kg

DRUGS (5)
  1. VICTOZA [Suspect]
     Indication: TYPE 2 DIABETES MELLITUS
     Dosage: 0.3 MG, QD
     Route: 058
     Dates: start: 20100615, end: 20100617
  2. VICTOZA [Suspect]
     Dosage: 0.6 MG QD
     Dates: start: 20100618, end: 20100621
  3. VICTOZA [Suspect]
     Dosage: 0.9 UNK, UNK
     Route: 058
     Dates: start: 20100622, end: 20100811
  4. MIGLITOL [Suspect]
     Dosage: 150 MG, QD
     Route: 048
     Dates: start: 20100625, end: 20100809
  5. AMARYL [Concomitant]
     Dosage: /PO
     Route: 048
     Dates: start: 20100615

REACTIONS (1)
  - HEPATIC FUNCTION ABNORMAL [None]
